FAERS Safety Report 17439455 (Version 1)
Quarter: 2020Q1

REPORT INFORMATION
  Report Type: Spontaneous
  Country: US (occurrence: US)
  Receive Date: 20200205
  Receipt Date: 20200205
  Transmission Date: 20200409
  Serious: Yes (Other)
  Sender: FDA-Public Use
  Company Number: None

PATIENT
  Age: 58 Year
  Sex: Male
  Weight: 92.99 kg

DRUGS (10)
  1. NORTRIPYLINE [Concomitant]
  2. TRIAMTERZINE/HCTZ [Concomitant]
  3. NAPROXEN. [Suspect]
     Active Substance: NAPROXEN
     Indication: INFLAMMATION
     Dosage: ?          QUANTITY:1 PILL;?
     Route: 048
     Dates: start: 20191127, end: 20191128
  4. SERTRALINE [Concomitant]
     Active Substance: SERTRALINE HYDROCHLORIDE
  5. OMEPRAZOLE. [Concomitant]
     Active Substance: OMEPRAZOLE
  6. QUETIAPINE. [Concomitant]
     Active Substance: QUETIAPINE
  7. ATORVASTATIN [Concomitant]
     Active Substance: ATORVASTATIN
  8. NAPROXEN. [Suspect]
     Active Substance: NAPROXEN
     Indication: BACK PAIN
     Dosage: ?          QUANTITY:1 PILL;?
     Route: 048
     Dates: start: 20191127, end: 20191128
  9. CYCLOBENZAPRINE. [Concomitant]
     Active Substance: CYCLOBENZAPRINE
  10. VALSARTAN. [Concomitant]
     Active Substance: VALSARTAN

REACTIONS (1)
  - Pruritus [None]

NARRATIVE: CASE EVENT DATE: 20191227
